FAERS Safety Report 16670298 (Version 2)
Quarter: 2020Q1

REPORT INFORMATION
  Report Type: Spontaneous
  Country: US (occurrence: US)
  Receive Date: 20190805
  Receipt Date: 20200103
  Transmission Date: 20200409
  Serious: No
  Sender: FDA-Public Use
  Company Number: US-GE HEALTHCARE LIFE SCIENCES-2019CSU003938

PATIENT
  Age: 46 Year
  Sex: Female
  Weight: 112 kg

DRUGS (2)
  1. OPTISON [Suspect]
     Active Substance: ALBUMIN HUMAN
     Indication: ECHOCARDIOGRAM
     Dosage: 2 ML, DILUTED SINGLE
     Route: 042
     Dates: start: 20190726, end: 20190726
  2. OPTISON [Suspect]
     Active Substance: ALBUMIN HUMAN
     Indication: ACUTE RESPIRATORY FAILURE

REACTIONS (5)
  - Dizziness [Recovering/Resolving]
  - Heart rate increased [Recovering/Resolving]
  - Head discomfort [Recovering/Resolving]
  - Dyspnoea [Recovering/Resolving]
  - Feeling hot [Recovering/Resolving]

NARRATIVE: CASE EVENT DATE: 20190726
